FAERS Safety Report 18652702 (Version 1)
Quarter: 2020Q4

REPORT INFORMATION
  Report Type: Spontaneous
  Country: IN (occurrence: IN)
  Receive Date: 20201222
  Receipt Date: 20201222
  Transmission Date: 20210114
  Serious: Yes (Hospitalization)
  Sender: FDA-Public Use
  Company Number: IN-ELI_LILLY_AND_COMPANY-IN202012009992

PATIENT
  Age: 75 Year
  Sex: Female

DRUGS (1)
  1. RAMIVEN 150MG [Suspect]
     Active Substance: ABEMACICLIB
     Indication: PRODUCT USED FOR UNKNOWN INDICATION
     Dosage: 150 MG, UNKNOWN
     Route: 065

REACTIONS (2)
  - Diarrhoea [Unknown]
  - Pulmonary embolism [Unknown]
